FAERS Safety Report 17030796 (Version 2)
Quarter: 2019Q4

REPORT INFORMATION
  Report Type: Spontaneous
  Country: JP (occurrence: JP)
  Receive Date: 20191114
  Receipt Date: 20191203
  Transmission Date: 20200122
  Serious: Yes (Other)
  Sender: FDA-Public Use
  Company Number: JP-ELI_LILLY_AND_COMPANY-JP201911004575

PATIENT
  Sex: Male

DRUGS (5)
  1. IRINOTECAN [Concomitant]
     Active Substance: IRINOTECAN
     Indication: COLON CANCER
     Dosage: UNK
  2. ERBITUX [Suspect]
     Active Substance: CETUXIMAB
     Indication: COLON CANCER
     Dosage: 400 MG/M2, UNK
     Route: 041
  3. ERBITUX [Suspect]
     Active Substance: CETUXIMAB
     Dosage: 250 MG/M2, WEEKLY (1/W)
     Route: 041
     Dates: start: 20150620
  4. FOLINIC ACID [Concomitant]
     Active Substance: LEUCOVORIN
     Indication: COLON CANCER
     Dosage: UNK
  5. FLUOROURACIL. [Concomitant]
     Active Substance: FLUOROURACIL
     Indication: COLON CANCER
     Dosage: UNK

REACTIONS (7)
  - Melaena [Recovered/Resolved]
  - Blood pressure decreased [Recovered/Resolved]
  - Pneumonia klebsiella [Recovered/Resolved]
  - Disseminated intravascular coagulation [Recovered/Resolved]
  - Shock [Recovered/Resolved]
  - Cholangitis [Recovered/Resolved]
  - Pneumonia escherichia [Recovered/Resolved]

NARRATIVE: CASE EVENT DATE: 20150624
